FAERS Safety Report 23686397 (Version 1)
Quarter: 2024Q1

REPORT INFORMATION
  Report Type: Spontaneous
  Country: US (occurrence: US)
  Receive Date: 20240329
  Receipt Date: 20240329
  Transmission Date: 20240410
  Serious: Yes (Hospitalization)
  Sender: FDA-Public Use
  Company Number: US-RECORDATI RARE DISEASE INC.-2024002104

PATIENT

DRUGS (3)
  1. PANHEMATIN [Suspect]
     Active Substance: HEMIN
     Indication: Porphyria acute
     Dosage: UNK
     Dates: start: 20240306, end: 20240312
  2. GABAPENTIN [Suspect]
     Active Substance: GABAPENTIN
     Indication: Product used for unknown indication
     Dosage: 800 MG DAILY
     Dates: end: 202403
  3. GABAPENTIN [Suspect]
     Active Substance: GABAPENTIN
     Dosage: 400 MILLIGRAM, BID X 3 DAYS
     Dates: start: 20240319

REACTIONS (4)
  - Hospitalisation [Recovered/Resolved]
  - Brain fog [Unknown]
  - Memory impairment [Unknown]
  - Somnolence [Unknown]

NARRATIVE: CASE EVENT DATE: 20240301
